FAERS Safety Report 4526599-2 (Version None)
Quarter: 2004Q4

REPORT INFORMATION
  Report Type: 
  Country: None (occurrence: None)
  Receive Date: 20041214
  Receipt Date: 20041207
  Transmission Date: 20050328
  Serious: Yes (Other)
  Sender: FDA-Public Use
  Company Number: US-BRISTOL-MYERS SQUIBB COMPANY-12786695

PATIENT
  Age: 50 Year
  Sex: Male
  Weight: 75 kg

DRUGS (5)
  1. ERBITUX [Suspect]
     Indication: COLORECTAL CANCER
     Route: 042
     Dates: start: 20040101, end: 20040101
  2. BENADRYL [Concomitant]
     Indication: PREMEDICATION
     Route: 042
     Dates: start: 20040101, end: 20040101
  3. DEXAMETHASONE [Concomitant]
     Indication: PREMEDICATION
     Dates: start: 20040101, end: 20040101
  4. KYTRIL [Concomitant]
     Indication: PREMEDICATION
     Dates: start: 20040101, end: 20040101
  5. IRINOTECAN [Concomitant]

REACTIONS (5)
  - CHILLS [None]
  - CYANOSIS [None]
  - DERMATITIS ACNEIFORM [None]
  - DYSPNOEA [None]
  - TREMOR [None]
